FAERS Safety Report 11625205 (Version 1)
Quarter: 2015Q4

REPORT INFORMATION
  Report Type: Report from Study
  Country: AU (occurrence: AU)
  Receive Date: 20151013
  Receipt Date: 20151013
  Transmission Date: 20160304
  Serious: Yes (Hospitalization, Other)
  Sender: FDA-Public Use
  Company Number: AU-ROCHE-1644913

PATIENT
  Age: 43 Year
  Sex: Female

DRUGS (1)
  1. ACTEMRA [Suspect]
     Active Substance: TOCILIZUMAB
     Indication: RHEUMATOID ARTHRITIS
     Route: 042
     Dates: start: 20140805

REACTIONS (4)
  - Seizure [Recovered/Resolved]
  - Thyroiditis [Unknown]
  - Protein total increased [Unknown]
  - Stress [Unknown]

NARRATIVE: CASE EVENT DATE: 20150913
